FAERS Safety Report 5978810-9 (Version None)
Quarter: 2008Q4

REPORT INFORMATION
  Report Type: 
  Country: None (occurrence: None)
  Receive Date: 20081204
  Receipt Date: 20081125
  Transmission Date: 20090506
  Serious: Yes (Other)
  Sender: FDA-Public Use
  Company Number: PHHY2008MX30000

PATIENT
  Age: 72 Year
  Sex: Female

DRUGS (2)
  1. DIOVAN HCT [Suspect]
     Indication: HYPERTENSION
     Dosage: 1 TABLET (160/25 MG) PER DAY
     Route: 048
     Dates: start: 20060801
  2. TENORMIN [Concomitant]
     Dosage: 1 TABLET PER DAY

REACTIONS (3)
  - CATARACT [None]
  - CATARACT OPERATION [None]
  - HYPERTENSION [None]
